FAERS Safety Report 20664307 (Version 1)
Quarter: 2022Q2

REPORT INFORMATION
  Report Type: Spontaneous
  Country: US (occurrence: None)
  Receive Date: 20220401
  Receipt Date: 20220401
  Transmission Date: 20220720
  Serious: No
  Sender: FDA-Public Use
  Company Number: None

PATIENT
  Age: 70 Year
  Sex: Male

DRUGS (1)
  1. HUMIRA [Suspect]
     Active Substance: ADALIMUMAB
     Indication: Crohn^s disease
     Dosage: OTHER QUANTITY : 160MG, 80MG;?
     Route: 058
     Dates: start: 202203

REACTIONS (4)
  - Large intestinal obstruction [None]
  - Rash [None]
  - Fatigue [None]
  - Post procedural complication [None]

NARRATIVE: CASE EVENT DATE: 20220328
